FAERS Safety Report 18086494 (Version 1)
Quarter: 2020Q3

REPORT INFORMATION
  Report Type: Spontaneous
  Country: US (occurrence: US)
  Receive Date: 20200728
  Receipt Date: 20200728
  Transmission Date: 20201103
  Serious: No
  Sender: FDA-Public Use
  Company Number: None

PATIENT
  Sex: Female

DRUGS (1)
  1. VITRAKVI [Suspect]
     Active Substance: LAROTRECTINIB
     Indication: NEOPLASM MALIGNANT
     Route: 048
     Dates: start: 20200131

REACTIONS (4)
  - Confusional state [None]
  - Abdominal pain upper [None]
  - Drug ineffective [None]
  - Therapy cessation [None]
